FAERS Safety Report 6536028-5 (Version None)
Quarter: 2009Q4

REPORT INFORMATION
  Report Type: 
  Country: None (occurrence: None)
  Receive Date: 20091229
  Receipt Date: 20090326
  Transmission Date: 20100525
  Serious: Yes (Hospitalization, Disabling, Other)
  Sender: FDA-Public Use
  Company Number: WAES 0903USA04939

PATIENT
  Age: 55 Year
  Sex: Female

DRUGS (3)
  1. ZETIA [Suspect]
     Indication: HYPERCHOLESTEROLAEMIA
     Dosage: 10 MG/DAILY/PO
     Route: 048
     Dates: start: 20090126, end: 20090326
  2. LEVOTHYROXINE SODIUM [Concomitant]
  3. NIACIN [Concomitant]

REACTIONS (1)
  - ANGIOEDEMA [None]
